FAERS Safety Report 4371842-6 (Version None)
Quarter: 2004Q2

REPORT INFORMATION
  Report Type: 
  Country: None (occurrence: None)
  Receive Date: 20040604
  Receipt Date: 20040604
  Transmission Date: 20050107
  Serious: Yes (Other)
  Sender: FDA-Public Use
  Company Number: None

PATIENT
  Age: 38 Year
  Sex: Male
  Weight: 88.4514 kg

DRUGS (1)
  1. LUSTRAL 100 PFIZER [Suspect]
     Indication: DEPRESSION
     Dosage: 100 PD BUCCAL
     Route: 002
     Dates: start: 20040305, end: 20040604

REACTIONS (2)
  - EJACULATION DELAYED [None]
  - ERECTILE DYSFUNCTION [None]
